FAERS Safety Report 10565772 (Version 1)
Quarter: 2014Q4

REPORT INFORMATION
  Report Type: Spontaneous
  Country: US (occurrence: None)
  Receive Date: 20141103
  Receipt Date: 20141103
  Transmission Date: 20150529
  Serious: Yes (Hospitalization, Disabling)
  Sender: FDA-Public Use
  Company Number: NSR_01656_2014

PATIENT
  Age: 48 Year
  Sex: Male

DRUGS (2)
  1. METHYLPREDNISOLONE. [Suspect]
     Active Substance: METHYLPREDNISOLONE
     Indication: PARALYSIS
  2. ATENOLOL 50 MG [Suspect]
     Active Substance: ATENOLOL
     Indication: HYPERTENSION

REACTIONS (6)
  - Neck pain [None]
  - Blood pressure increased [None]
  - Paraplegia [None]
  - Asthenia [None]
  - Intervertebral disc protrusion [None]
  - Spinal cord injury cervical [None]
